FAERS Safety Report 15812726 (Version 1)
Quarter: 2019Q1

REPORT INFORMATION
  Report Type: Spontaneous
  Country: US (occurrence: US)
  Receive Date: 20190103
  Receipt Date: 20190103
  Transmission Date: 20190417
  Serious: No
  Sender: FDA-Public Use
  Company Number: None

PATIENT

DRUGS (2)
  1. TRIPLE ANTIBIOTIC NOS [Suspect]
     Active Substance: BACITRACIN ZINC\LIDOCAINE HYDROCHLORIDE\NEOMYCIN SULFATE\POLYMYXIN B SULFATE OR BACITRACIN ZINC\NEOMYCIN SULFATE\POLYMYXIN B OR BACITRACIN ZINC\NEOMYCIN SULFATE\POLYMYXIN B SULFATE OR BACITRACIN ZINC\NEOMYCIN SULFATE\POLYMYXIN B SULFATE\PRAMOXINE HYDROCHLORIDE OR BACITRACIN ZINC\NEOMYCIN\POLYMYXIN B
  2. TRIPLE CREAM [Suspect]
     Active Substance: UNSPECIFIED INGREDIENT

REACTIONS (2)
  - Product dispensing error [None]
  - Duplicate therapy error [None]
